FAERS Safety Report 16797790 (Version 1)
Quarter: 2019Q3

REPORT INFORMATION
  Report Type: Spontaneous
  Country: DE (occurrence: DE)
  Receive Date: 20190912
  Receipt Date: 20190912
  Transmission Date: 20191005
  Serious: Yes (Other)
  Sender: FDA-Public Use
  Company Number: DE-TEVA-2019-DE-1105504

PATIENT
  Age: 62 Year
  Sex: Male

DRUGS (1)
  1. METOPROLOL RATIO SUCCINAT 95 MG [Suspect]
     Active Substance: METOPROLOL SUCCINATE
     Indication: HYPERTENSION
     Dosage: 95 MILLIGRAM, 12 HOURS, 1-0-1
     Route: 048
     Dates: start: 20160911, end: 20190816

REACTIONS (7)
  - Skin burning sensation [Not Recovered/Not Resolved]
  - Skin laceration [Not Recovered/Not Resolved]
  - Dermatitis [Not Recovered/Not Resolved]
  - Psoriasis [Not Recovered/Not Resolved]
  - Pruritus [Not Recovered/Not Resolved]
  - Adverse reaction [Unknown]
  - Skin fissures [Not Recovered/Not Resolved]

NARRATIVE: CASE EVENT DATE: 20190214
